FAERS Safety Report 5613945-1 (Version None)
Quarter: 2008Q1

REPORT INFORMATION
  Report Type: 
  Country: None (occurrence: None)
  Receive Date: 20080129
  Receipt Date: 20080121
  Transmission Date: 20080703
  Serious: Yes (Hospitalization)
  Sender: FDA-Public Use
  Company Number: 2008PV000006

PATIENT
  Age: 54 Year
  Sex: Female
  Weight: 74 kg

DRUGS (1)
  1. CYTARABINE [Suspect]
     Indication: CHLOROMA
     Dosage: 50 MG; X1; INTH
     Route: 037
     Dates: start: 20070816, end: 20070816

REACTIONS (5)
  - DRUG TOXICITY [None]
  - OBSTRUCTION [None]
  - PARAPLEGIA [None]
  - SCIATICA [None]
  - SPINAL DISORDER [None]
